FAERS Safety Report 4835955-4 (Version None)
Quarter: 2005Q4

REPORT INFORMATION
  Report Type: 
  Country: None (occurrence: None)
  Receive Date: 20051123
  Receipt Date: 20051116
  Transmission Date: 20060501
  Serious: Yes (Death, Hospitalization)
  Sender: FDA-Public Use
  Company Number: BR-SANOFI-SYNTHELABO-F01200502444

PATIENT
  Sex: Female

DRUGS (3)
  1. OXALIPLATIN [Suspect]
     Indication: COLON CANCER
     Dosage: 85 MG/M2 1 X PER 2 WEEK
     Route: 042
  2. FLUOROURACIL [Suspect]
     Indication: COLON CANCER
     Dosage: 1000 MG/M2 1 X PER 2 WEEK
     Route: 042
  3. LEUCOVORIN [Suspect]
     Indication: COLON CANCER
     Dosage: 200MG/M2 1 X PER 2 WEEK
     Route: 042

REACTIONS (2)
  - LABORATORY TEST ABNORMAL [None]
  - VAGINAL HAEMORRHAGE [None]
